FAERS Safety Report 11115057 (Version 1)
Quarter: 2015Q2

REPORT INFORMATION
  Report Type: Spontaneous
  Country: US (occurrence: None)
  Receive Date: 20150513
  Receipt Date: 20150513
  Transmission Date: 20150821
  Serious: Yes (Life-Threatening, Other)
  Sender: FDA-Public Use
  Company Number: 1-0515-17

PATIENT
  Age: 82 Year
  Sex: Male

DRUGS (1)
  1. FLUOCINOLONE ACETONIDE 0.01% [Suspect]
     Active Substance: FLUOCINOLONE ACETONIDE
     Indication: DERMATITIS
     Dosage: THIN FILM, OD
     Route: 061
     Dates: start: 20150415

REACTIONS (3)
  - Application site pain [None]
  - Application site vesicles [None]
  - Dyspnoea [None]

NARRATIVE: CASE EVENT DATE: 20150416
